FAERS Safety Report 12875788 (Version 4)
Quarter: 2019Q4

REPORT INFORMATION
  Report Type: Spontaneous
  Country: IT (occurrence: IT)
  Receive Date: 20161024
  Receipt Date: 20191021
  Transmission Date: 20200122
  Serious: Yes (Other)
  Sender: FDA-Public Use
  Company Number: IT-TEVA-703699ACC

PATIENT
  Age: 34 Year
  Sex: Female

DRUGS (5)
  1. NIFEDIPINE. [Suspect]
     Active Substance: NIFEDIPINE
     Indication: HYPERTENSION
     Dosage: 20 MILLIGRAM DAILY;
  2. METILDOPA [Concomitant]
     Active Substance: METHYLDOPA
  3. EPLERENONE. [Concomitant]
     Active Substance: EPLERENONE
  4. POTASSIUM CHLORIDE. [Concomitant]
     Active Substance: POTASSIUM CHLORIDE
  5. MAGNESIUM SULFATE. [Concomitant]
     Active Substance: MAGNESIUM SULFATE

REACTIONS (6)
  - Maternal exposure during pregnancy [Unknown]
  - Palpitations [Recovering/Resolving]
  - Premature delivery [Unknown]
  - Hypertension [Unknown]
  - Blood pressure increased [Unknown]
  - Caesarean section [Unknown]
